FAERS Safety Report 22090083 (Version 1)
Quarter: 2023Q1

REPORT INFORMATION
  Report Type: Spontaneous
  Country: US (occurrence: None)
  Receive Date: 20230313
  Receipt Date: 20230313
  Transmission Date: 20230418
  Serious: No
  Sender: FDA-Public Use
  Company Number: None

PATIENT
  Age: 62 Year
  Sex: Male
  Weight: 133 kg

DRUGS (1)
  1. CEQUA [Suspect]
     Active Substance: CYCLOSPORINE
     Indication: Dry eye
     Dosage: OTHER QUANTITY : 1 DROP(S);?FREQUENCY : TWICE A DAY;?
     Route: 047

REACTIONS (6)
  - Ocular discomfort [None]
  - Ocular hyperaemia [None]
  - Eye swelling [None]
  - Eye irritation [None]
  - Foreign body sensation in eyes [None]
  - Eye irritation [None]

NARRATIVE: CASE EVENT DATE: 20230308
